FAERS Safety Report 12344375 (Version 2)
Quarter: 2016Q3

REPORT INFORMATION
  Report Type: Spontaneous
  Country: US (occurrence: US)
  Receive Date: 20160507
  Receipt Date: 20160725
  Transmission Date: 20161109
  Serious: Yes (Death, Hospitalization)
  Sender: FDA-Public Use
  Company Number: US-JNJFOC-20160402269

PATIENT
  Age: 62 Year
  Sex: Male

DRUGS (4)
  1. XARELTO [Suspect]
     Active Substance: RIVAROXABAN
     Indication: ATRIAL FIBRILLATION
     Dosage: 15, 20 MG
     Route: 048
     Dates: start: 20140613, end: 20140706
  2. MOTRIN [Suspect]
     Active Substance: IBUPROFEN
     Route: 048
  3. XARELTO [Suspect]
     Active Substance: RIVAROXABAN
     Indication: CEREBROVASCULAR ACCIDENT PROPHYLAXIS
     Dosage: 15, 20 MG
     Route: 048
     Dates: start: 20140613, end: 20140706
  4. MOTRIN [Suspect]
     Active Substance: IBUPROFEN
     Indication: PRODUCT USED FOR UNKNOWN INDICATION
     Dosage: 200 MG TABLET, 400 MG TO BE TAKEN DAILY
     Route: 048

REACTIONS (1)
  - Gastroduodenal haemorrhage [Fatal]

NARRATIVE: CASE EVENT DATE: 20140706
